FAERS Safety Report 5037240-7 (Version None)
Quarter: 2006Q2

REPORT INFORMATION
  Report Type: 
  Country: None (occurrence: None)
  Receive Date: 20060628
  Receipt Date: 20060519
  Transmission Date: 20061013
  Serious: Yes (Disabling)
  Sender: FDA-Public Use
  Company Number: US-SANOFI-SYNTHELABO-A03200603217

PATIENT
  Sex: Female

DRUGS (6)
  1. PRAVACHOL [Concomitant]
     Dosage: UNK
     Route: 048
  2. TOPROL-XL [Concomitant]
     Dosage: UNK
     Route: 048
  3. PAXIL [Concomitant]
     Dosage: UNK
     Route: 048
  4. ALTACE [Concomitant]
     Dosage: UNK
     Route: 048
  5. NITROQUICK [Concomitant]
     Dosage: UNK
     Route: 060
  6. AMBIEN [Suspect]
     Indication: INSOMNIA
     Route: 048

REACTIONS (11)
  - ACTIVITIES OF DAILY LIVING IMPAIRED [None]
  - AMNESIA [None]
  - ASTHENIA [None]
  - CONFUSIONAL STATE [None]
  - DIZZINESS [None]
  - FALL [None]
  - LOSS OF CONSCIOUSNESS [None]
  - PAIN [None]
  - SLEEP WALKING [None]
  - SYNCOPE [None]
  - UPPER LIMB FRACTURE [None]
